FAERS Safety Report 5262279-6 (Version None)
Quarter: 2007Q1

REPORT INFORMATION
  Report Type: 
  Country: None (occurrence: None)
  Receive Date: 20070312
  Receipt Date: 20070208
  Transmission Date: 20070707
  Serious: Yes (Other)
  Sender: FDA-Public Use
  Company Number: FR-BAYER-200710153BFR

PATIENT
  Age: 8 Year
  Sex: Male

DRUGS (1)
  1. ADALATE LP [Suspect]
     Indication: UNEVALUABLE EVENT
     Route: 048
     Dates: start: 20040101

REACTIONS (1)
  - PERSONALITY DISORDER OF CHILDHOOD [None]
